FAERS Safety Report 5087711-2 (Version None)
Quarter: 2006Q3

REPORT INFORMATION
  Report Type: 
  Country: None (occurrence: None)
  Receive Date: 20060822
  Receipt Date: 20060822
  Transmission Date: 20061208
  Serious: Yes (Life-Threatening, Other)
  Sender: FDA-Public Use
  Company Number: None

PATIENT
  Age: 37 Year
  Sex: Male
  Weight: 83.9154 kg

DRUGS (2)
  1. CYPHER SIROLIMUS-ELUTING  2.5 X 18MM CORDIS, JOHNSON-JOHNSON [Suspect]
     Indication: CHEST PAIN
  2. CYPHER SIROLIMUS-ELUTING  2.5 X 18MM CORDIS, JOHNSON-JOHNSON [Suspect]
     Indication: CORONARY ARTERY STENOSIS

REACTIONS (7)
  - ACNE [None]
  - CHEST PAIN [None]
  - DYSPNOEA [None]
  - FATIGUE [None]
  - PARAESTHESIA [None]
  - PROCEDURAL PAIN [None]
  - PRURITUS [None]
